FAERS Safety Report 19586256 (Version 2)
Quarter: 2021Q3

REPORT INFORMATION
  Report Type: Spontaneous
  Country: CN (occurrence: CN)
  Receive Date: 20210721
  Receipt Date: 20210908
  Transmission Date: 20211014
  Serious: Yes (Hospitalization, Other)
  Sender: FDA-Public Use
  Company Number: CN-NOVOPROD-829672

PATIENT
  Age: 83 Year
  Sex: Male
  Weight: 70 kg

DRUGS (5)
  1. LEVEMIR [Suspect]
     Active Substance: INSULIN DETEMIR
     Dosage: 14?30 IU
     Route: 065
  2. ACARBOSE. [Suspect]
     Active Substance: ACARBOSE
     Dosage: 6 TABLETS A DAY
     Route: 065
  3. LEVEMIR [Suspect]
     Active Substance: INSULIN DETEMIR
     Indication: TYPE 2 DIABETES MELLITUS
     Dosage: 8?9 IU
     Route: 065
     Dates: start: 2018
  4. LEVEMIR [Suspect]
     Active Substance: INSULIN DETEMIR
     Dosage: 30 IU
     Route: 065
  5. ACARBOSE. [Suspect]
     Active Substance: ACARBOSE
     Indication: TYPE 2 DIABETES MELLITUS
     Dosage: ONE TABLET, TID
     Route: 065
     Dates: start: 2018

REACTIONS (6)
  - Sepsis [Unknown]
  - Sepsis [Unknown]
  - Urinary tract infection [Unknown]
  - Blood glucose increased [Unknown]
  - Organ failure [Unknown]
  - Blood glucose increased [Not Recovered/Not Resolved]

NARRATIVE: CASE EVENT DATE: 2019
